FAERS Safety Report 8894573 (Version 2)
Quarter: 2012Q4

REPORT INFORMATION
  Report Type: Report from Study
  Country: DE (occurrence: DE)
  Receive Date: 20121108
  Receipt Date: 20121213
  Transmission Date: 20130627
  Serious: Yes (Hospitalization, Other)
  Sender: FDA-Public Use
  Company Number: DE-ASTELLAS-2012US010894

PATIENT
  Age: 83 Year
  Sex: Male
  Weight: 72 kg

DRUGS (3)
  1. ERLOTINIB TABLET [Suspect]
     Indication: NON-SMALL CELL LUNG CANCER
     Dosage: 150 mg, UID/QD
     Route: 048
     Dates: start: 20121006
  2. FUROSEMIDE [Concomitant]
     Indication: POLYURIA
     Dosage: UNK
     Route: 048
  3. BELOC-ZOK [Concomitant]
     Indication: TACHYARRHYTHMIA
     Dosage: 47.5 mg, bid
     Route: 048
     Dates: start: 20121008

REACTIONS (4)
  - General physical health deterioration [Unknown]
  - Pulmonary embolism [Unknown]
  - Dyspnoea [Unknown]
  - Thrombosis [Unknown]
